FAERS Safety Report 14190239 (Version 3)
Quarter: 2018Q1

REPORT INFORMATION
  Report Type: Spontaneous
  Country: US (occurrence: US)
  Receive Date: 20171115
  Receipt Date: 20180305
  Transmission Date: 20180508
  Serious: No
  Sender: FDA-Public Use
  Company Number: US-PFIZER INC-2017487943

PATIENT
  Age: 71 Year
  Sex: Male

DRUGS (26)
  1. MEDROL [Concomitant]
     Active Substance: METHYLPREDNISOLONE
     Dosage: 32 MG, UNK (MEDRO 32 MG - TAPER PREDNISONE)
     Dates: start: 20171001, end: 20171010
  2. TRILEPTAL [Concomitant]
     Active Substance: OXCARBAZEPINE
     Dosage: 300 MG, DAILY
  3. TRAZODONE [Concomitant]
     Active Substance: TRAZODONE HYDROCHLORIDE
     Indication: DEPRESSION
     Dosage: 50 MG, DAILY
     Dates: start: 20171128, end: 20171130
  4. LYRICA [Suspect]
     Active Substance: PREGABALIN
     Indication: FACIAL PAIN
     Dosage: 75 MG, 4X/DAY
     Dates: start: 20171114
  5. LYRICA [Suspect]
     Active Substance: PREGABALIN
     Dosage: 200 MG, DAILY
     Dates: start: 20180103
  6. TRAZODONE [Concomitant]
     Active Substance: TRAZODONE HYDROCHLORIDE
     Dosage: UNK
     Dates: start: 201712
  7. LYRICA [Suspect]
     Active Substance: PREGABALIN
     Indication: OCULAR DISCOMFORT
     Dosage: 300 MG, DAILY
     Dates: start: 20171118
  8. LYRICA [Suspect]
     Active Substance: PREGABALIN
     Dosage: 100 MG, 3X/DAY, (PLUS ADD ONE 75 MG/OR DAILY TOTAL OF 375 MG)
     Dates: start: 20171213
  9. LYRICA [Suspect]
     Active Substance: PREGABALIN
     Dosage: 100 MG, DAILY
     Dates: start: 20180117
  10. LYRICA [Suspect]
     Active Substance: PREGABALIN
     Dosage: 100 MG, DAILY
     Dates: start: 20180204
  11. AMBIEN [Concomitant]
     Active Substance: ZOLPIDEM TARTRATE
     Dosage: 5 MG, AS NEEDED
     Dates: start: 20171110, end: 20171127
  12. LYRICA [Suspect]
     Active Substance: PREGABALIN
     Indication: TRIGEMINAL NEURALGIA
     Dosage: 225 MG, DAILY
     Dates: start: 20171111
  13. LYRICA [Suspect]
     Active Substance: PREGABALIN
     Dosage: 300 MG, DAILY
     Dates: start: 20171227
  14. LYRICA [Suspect]
     Active Substance: PREGABALIN
     Dosage: 50 MG, DAILY
     Dates: start: 20180131
  15. VALTREX [Concomitant]
     Active Substance: VALACYCLOVIR HYDROCHLORIDE
     Indication: POST HERPETIC NEURALGIA
     Dosage: 1000 MG, 1X/DAY
     Dates: start: 20171030
  16. LYRICA [Suspect]
     Active Substance: PREGABALIN
     Indication: POST HERPETIC NEURALGIA
     Dosage: 150 MG, DAILY
     Dates: start: 20171107
  17. VALTREX [Concomitant]
     Active Substance: VALACYCLOVIR HYDROCHLORIDE
     Indication: HERPES ZOSTER
     Dosage: UNK
     Dates: start: 20171001
  18. VALTREX [Concomitant]
     Active Substance: VALACYCLOVIR HYDROCHLORIDE
     Indication: TRIGEMINAL NEURALGIA
     Dosage: 1000 MG, 2X/DAY
     Dates: start: 20171128, end: 20171227
  19. AMBIEN [Concomitant]
     Active Substance: ZOLPIDEM TARTRATE
     Dosage: UNK
     Dates: start: 201712
  20. LYRICA [Suspect]
     Active Substance: PREGABALIN
     Indication: PAIN
     Dosage: 375 MG, DAILY (5 X PER DAY)
     Dates: start: 20171128
  21. LYRICA [Suspect]
     Active Substance: PREGABALIN
     Dosage: 175 MG, DAILY
     Dates: start: 20180110
  22. LYRICA [Suspect]
     Active Substance: PREGABALIN
     Dosage: 50 MG, DAILY
     Dates: start: 20180212, end: 20180216
  23. VALTREX [Concomitant]
     Active Substance: VALACYCLOVIR HYDROCHLORIDE
     Indication: PAIN
     Dosage: UNK UNK, 3X/DAY
     Dates: start: 20171003
  24. KETAMINE [Concomitant]
     Active Substance: KETAMINE
     Dosage: UNK, AS NEEDED (OCCASIONALLY)
     Dates: start: 20171101
  25. PERCOCET [Concomitant]
     Active Substance: ACETAMINOPHEN\OXYCODONE HYDROCHLORIDE
     Indication: PAIN
     Dosage: UNK UNK, AS NEEDED (10-325)
     Dates: start: 20171214, end: 20171223
  26. TRILEPTAL [Concomitant]
     Active Substance: OXCARBAZEPINE
     Dosage: 150 MG, 2X/DAY
     Dates: start: 20171101

REACTIONS (1)
  - Drug effect incomplete [Unknown]

NARRATIVE: CASE EVENT DATE: 201711
